FAERS Safety Report 12810558 (Version 1)
Quarter: 2016Q4

REPORT INFORMATION
  Report Type: Report from Study
  Country: US (occurrence: US)
  Receive Date: 20161005
  Receipt Date: 20161005
  Transmission Date: 20170207
  Serious: Yes (Other)
  Sender: FDA-Public Use
  Company Number: US-ROCHE-1837188

PATIENT
  Age: 29 Year
  Sex: Female
  Weight: 95.7 kg

DRUGS (5)
  1. BEVACIZUMAB [Suspect]
     Active Substance: BEVACIZUMAB
     Indication: OVARIAN EPITHELIAL CANCER
     Dosage: OVER 30-90 MINUTES ON DAY 1 FROM COURSE 2?THERAPY RECEIVED DATES: 17/APR/2015 (COURSE 3), 08/MAY/201
     Route: 042
     Dates: start: 20150327, end: 20150710
  2. VELIPARIB [Suspect]
     Active Substance: VELIPARIB
     Dosage: PO BID ON DAYS 1-21 AS PER PROTOCOL?COURSE 3?THERAPY RECEIVED DATES: 29/MAY/2015 (COURSE 5)
     Route: 048
     Dates: start: 20150417
  3. VELIPARIB [Suspect]
     Active Substance: VELIPARIB
     Indication: OVARIAN EPITHELIAL CANCER
     Dosage: PO BID ON DAYS 1-21 AS PER PROTOCOL?COURSE 1
     Route: 048
     Dates: start: 20150306, end: 20150710
  4. VELIPARIB [Suspect]
     Active Substance: VELIPARIB
     Dosage: PO BID ON DAYS 1-21 AS PER PROTOCOL?COURSE 2
     Route: 048
     Dates: start: 20150327
  5. VELIPARIB [Suspect]
     Active Substance: VELIPARIB
     Dosage: PO BID ON DAYS 1-21 AS PER PROTOCOL?COURSE 4
     Route: 048
     Dates: start: 20150508

REACTIONS (2)
  - White blood cell count decreased [Unknown]
  - Anaemia [Unknown]
